FAERS Safety Report 21379331 (Version 6)
Quarter: 2024Q3

REPORT INFORMATION
  Report Type: Spontaneous
  Country: US (occurrence: US)
  Receive Date: 20220927
  Receipt Date: 20240923
  Transmission Date: 20241016
  Serious: Yes (Hospitalization, Other)
  Sender: BIOCODEX
  Company Number: US-BIOCODEX2-2022000415

PATIENT
  Sex: Female
  Weight: 7.8 kg

DRUGS (12)
  1. DIACOMIT [Suspect]
     Active Substance: STIRIPENTOL
     Indication: Severe myoclonic epilepsy of infancy
     Route: 048
     Dates: start: 20220401
  2. DIACOMIT [Suspect]
     Active Substance: STIRIPENTOL
     Indication: Severe myoclonic epilepsy of infancy
     Route: 065
     Dates: start: 202205
  3. DIACOMIT [Suspect]
     Active Substance: STIRIPENTOL
     Indication: Severe myoclonic epilepsy of infancy
     Route: 048
     Dates: start: 20211231
  4. DIACOMIT [Suspect]
     Active Substance: STIRIPENTOL
     Indication: Severe myoclonic epilepsy of infancy
     Route: 065
  5. DIACOMIT [Suspect]
     Active Substance: STIRIPENTOL
     Indication: Severe myoclonic epilepsy of infancy
     Route: 048
  6. DIACOMIT [Suspect]
     Active Substance: STIRIPENTOL
     Indication: Severe myoclonic epilepsy of infancy
     Dosage: 125 MG, 125MG, AND 250 MG BY MOUTH IN THREE SEPARATE DOSES EACH DAY
     Route: 048
  7. DIACOMIT [Suspect]
     Active Substance: STIRIPENTOL
     Indication: Severe myoclonic epilepsy of infancy
     Dosage: DAYS 1-14: 175 MG, 125MG, AND 250 MG BY MOUTH IN THREE SEPARATE DOSES EACH DAY
     Route: 048
  8. DIACOMIT [Suspect]
     Active Substance: STIRIPENTOL
     Indication: Severe myoclonic epilepsy of infancy
     Dosage: DAYS 15 AND THEREAFTER: 175 MG, 175MG, AND 250 MG BY MOUTH IN THREE SEPARATE DOSES EACH DAY
     Route: 048
  9. DIACOMIT [Suspect]
     Active Substance: STIRIPENTOL
     Indication: Severe myoclonic epilepsy of infancy
     Dosage: 200 MG, 200 MG, AND 250 MG BY ?MOUTH IN THREE SEPARATE DOSES ?EACH DAY
     Route: 048
  10. DIACOMIT [Suspect]
     Active Substance: STIRIPENTOL
     Indication: Severe myoclonic epilepsy of infancy
     Dosage: 250 MG THREE TIMES DAILY
     Route: 050
  11. DIACOMIT [Suspect]
     Active Substance: STIRIPENTOL
     Indication: Severe myoclonic epilepsy of infancy
     Dosage: 300 MG, 250 MG, AND 300 MG BY MOUTH IN THREE SEPARATE DOSES EACH DAY
     Route: 048
  12. DIACOMIT [Suspect]
     Active Substance: STIRIPENTOL
     Indication: Severe myoclonic epilepsy of infancy
     Dosage: 250MG VIA G-TUBE THREE TIMES DAILY
     Route: 050
     Dates: start: 20220801

REACTIONS (13)
  - Seizure [Recovered/Resolved]
  - Decreased appetite [Unknown]
  - Non-24-hour sleep-wake disorder [Unknown]
  - Status epilepticus [Recovered/Resolved]
  - Gait disturbance [Not Recovered/Not Resolved]
  - Change in seizure presentation [Unknown]
  - Cyanosis [Unknown]
  - Bacterial infection [Unknown]
  - Viral infection [Unknown]
  - Gastrostomy [Unknown]
  - Off label use [Unknown]
  - Drug ineffective [Unknown]
  - Product preparation issue [Unknown]

NARRATIVE: CASE EVENT DATE: 20220403
